FAERS Safety Report 19179456 (Version 1)
Quarter: 2021Q2

REPORT INFORMATION
  Report Type: Spontaneous
  Country: US (occurrence: US)
  Receive Date: 20210423
  Receipt Date: 20210423
  Transmission Date: 20210717
  Serious: Yes (Disabling)
  Sender: FDA-Public Use
  Company Number: None

PATIENT
  Age: 59 Year
  Sex: Male
  Weight: 99 kg

DRUGS (1)
  1. CELECOXIB 100MG CAP MYLAN 7160 PURPLE CAP [Suspect]
     Active Substance: CELECOXIB
     Indication: BACK PAIN
     Route: 048
     Dates: start: 20200507, end: 20210209

REACTIONS (5)
  - Weight increased [None]
  - Muscle strength abnormal [None]
  - Arthralgia [None]
  - Fatigue [None]
  - Mood swings [None]

NARRATIVE: CASE EVENT DATE: 20210209
